FAERS Safety Report 9629490 (Version 3)
Quarter: 2014Q1

REPORT INFORMATION
  Report Type: Report from Study
  Country: CZ (occurrence: CZ)
  Receive Date: 20131017
  Receipt Date: 20140121
  Transmission Date: 20141002
  Serious: Yes (Hospitalization)
  Sender: FDA-Public Use
  Company Number: CZ-ABBVIE-13P-217-1156935-00

PATIENT
  Age: 64 Year
  Sex: Female
  Weight: 56 kg

DRUGS (9)
  1. HUMIRA [Suspect]
     Indication: RHEUMATOID ARTHRITIS
     Dates: start: 20100929, end: 20130619
  2. METHOTHREXAT [Concomitant]
     Indication: RHEUMATOID ARTHRITIS
     Dates: start: 2009
  3. MEDROL [Concomitant]
     Indication: RHEUMATOID ARTHRITIS
     Dates: start: 2000
  4. PANDOPREZOL [Concomitant]
     Indication: PROPHYLAXIS
  5. PANDOPREZOL [Concomitant]
     Indication: GASTRODUODENAL ULCER
  6. LUSOPRESS (NITRENDIPINUM) [Concomitant]
     Indication: HYPERTENSION
  7. LOZAP H (LOSARTANUM KALICUM + HYDROCHLORTIAZIDUM) [Concomitant]
     Indication: HYPERTENSION
  8. VASOCARDIN (METOPROLOL) [Concomitant]
     Indication: PRODUCT USED FOR UNKNOWN INDICATION
  9. DETRALEX (DIOSMIN, HESPERIDIN) [Concomitant]
     Indication: PRODUCT USED FOR UNKNOWN INDICATION

REACTIONS (6)
  - Painful respiration [Recovered/Resolved]
  - Pyrexia [Recovered/Resolved]
  - Dyspnoea [Recovered/Resolved]
  - Pulmonary embolism [Recovered/Resolved]
  - Pulmonary infarction [Recovered/Resolved]
  - Pneumonia [Recovered/Resolved]
